FAERS Safety Report 7870480 (Version 3)
Quarter: 2013Q1

REPORT INFORMATION
  Report Type: Spontaneous
  Country: US (occurrence: US)
  Receive Date: 20110324
  Receipt Date: 20130211
  Transmission Date: 20140127
  Serious: Yes (Other)
  Sender: FDA-Public Use
  Company Number: US-RB-023220-11

PATIENT
  Age: 24 None
  Sex: Female

DRUGS (6)
  1. SUBOXONE FILM [Suspect]
     Indication: DRUG DEPENDENCE
     Dosage: SUBLINGUAL FILM
     Route: 060
     Dates: start: 20110203, end: 20110228
  2. SUBUTEX [Suspect]
     Indication: DRUG DEPENDENCE
     Route: 060
     Dates: start: 20110301
  3. SUBUTEX [Suspect]
     Dosage: TAKING MORE THAN PRESCRIBED
     Route: 060
     Dates: start: 2011
  4. PERCOCET [Suspect]
     Indication: PAIN
     Dosage: DOSING INFORMATION UNKNOWN
     Route: 065
     Dates: start: 20110216
  5. COCAINE [Suspect]
     Indication: PRODUCT USED FOR UNKNOWN INDICATION
     Dosage: DOSING INFORMATION UNKNOWN
     Route: 065
     Dates: start: 2011
  6. ANTIBIOTIC [Suspect]
     Indication: TOOTH ABSCESS
     Dosage: DOSING DETAILS UNKNOWN
     Dates: start: 20110216

REACTIONS (8)
  - Exposure during pregnancy [Recovered/Resolved]
  - Off label use [Recovered/Resolved]
  - Small for dates baby [Recovered/Resolved]
  - Amniotic fluid volume decreased [Recovered/Resolved]
  - Intentional overdose [Unknown]
  - Drug abuse [Unknown]
  - Tooth abscess [Recovered/Resolved]
  - Premature delivery [Recovered/Resolved]
